FAERS Safety Report 20007899 (Version 10)
Quarter: 2022Q2

REPORT INFORMATION
  Report Type: Spontaneous
  Country: CA (occurrence: CA)
  Receive Date: 20211028
  Receipt Date: 20220627
  Transmission Date: 20220721
  Serious: Yes (Other)
  Sender: FDA-Public Use
  Company Number: CA-PFIZER INC-2021084864

PATIENT
  Age: 74 Year
  Sex: Female
  Weight: 54 kg

DRUGS (27)
  1. RUXIENCE [Suspect]
     Active Substance: RITUXIMAB-PVVR
     Indication: Rheumatoid arthritis
     Dosage: 1 G (DAY 0 AND DAY 14, Q 6 MONTHS)
     Route: 042
     Dates: start: 2021
  2. RUXIENCE [Suspect]
     Active Substance: RITUXIMAB-PVVR
     Indication: Scleroderma
     Dosage: 1000 MG, DAY 1, DAY 15
     Route: 042
     Dates: start: 20210422, end: 20210506
  3. RUXIENCE [Suspect]
     Active Substance: RITUXIMAB-PVVR
     Indication: Rheumatoid arthritis
     Dosage: 1 G 10 MG/L DAY1 AND 15
     Route: 042
     Dates: start: 20210422
  4. RUXIENCE [Suspect]
     Active Substance: RITUXIMAB-PVVR
     Dosage: 1 G 10 MG/L DAY1 AND 15
     Route: 042
     Dates: start: 20210506
  5. RUXIENCE [Suspect]
     Active Substance: RITUXIMAB-PVVR
     Dosage: 1 G 10 MG/L DAY1 AND 15
     Route: 042
     Dates: start: 20210506
  6. RUXIENCE [Suspect]
     Active Substance: RITUXIMAB-PVVR
     Dosage: 1 G 10 MG/L DAY1 AND 15
     Route: 042
     Dates: start: 20211021
  7. RUXIENCE [Suspect]
     Active Substance: RITUXIMAB-PVVR
     Dosage: 1000 MG,  DAY1 AND 15
     Route: 042
     Dates: start: 20211104, end: 20211118
  8. RUXIENCE [Suspect]
     Active Substance: RITUXIMAB-PVVR
     Dosage: 1 G 10 MG/L DAY1 AND 15
     Route: 042
     Dates: start: 20211104
  9. RUXIENCE [Suspect]
     Active Substance: RITUXIMAB-PVVR
     Dosage: 1 G 10 MG/L DAY1 AND 15
     Route: 042
     Dates: start: 20211118
  10. RUXIENCE [Suspect]
     Active Substance: RITUXIMAB-PVVR
     Dosage: 1000 MG,  DAY 1 AND DAY 15
     Route: 042
     Dates: start: 20220606
  11. RUXIENCE [Suspect]
     Active Substance: RITUXIMAB-PVVR
     Dosage: 1000 MG,  DAY 1 AND DAY 15
     Route: 042
     Dates: start: 20220606, end: 20220620
  12. RUXIENCE [Suspect]
     Active Substance: RITUXIMAB-PVVR
     Dosage: 1000 MG,  DAY 1 AND DAY 15
     Route: 042
     Dates: start: 20220620
  13. ACETAMINOPHEN [Concomitant]
     Active Substance: ACETAMINOPHEN
     Indication: Premedication
     Dosage: UNK
     Dates: start: 20220606, end: 20220606
  14. AMLODIPINE BESYLATE [Concomitant]
     Active Substance: AMLODIPINE BESYLATE
     Dosage: 5 MG, DAILY
     Route: 065
  15. COLCHICINE [Concomitant]
     Active Substance: COLCHICINE
     Dosage: 6 UG, DAILY
  16. COLCHICINE [Concomitant]
     Active Substance: COLCHICINE
     Dosage: 1 DF, 1X/DAY 0.6MCG
     Route: 065
  17. EZETIMIBE [Concomitant]
     Active Substance: EZETIMIBE
     Dosage: 10 MG
     Route: 048
  18. METHYLPREDNISOLONE [Concomitant]
     Active Substance: METHYLPREDNISOLONE
     Indication: Premedication
     Dosage: 100 MG
     Route: 042
     Dates: start: 20210506, end: 20210506
  19. METHYLPREDNISOLONE [Concomitant]
     Active Substance: METHYLPREDNISOLONE
     Dosage: UNK
     Dates: start: 20211104, end: 20211104
  20. METHYLPREDNISOLONE [Concomitant]
     Active Substance: METHYLPREDNISOLONE
     Dosage: UNK
     Dates: start: 20220606, end: 20220606
  21. METHYLPREDNISOLONE [Concomitant]
     Active Substance: METHYLPREDNISOLONE
     Dosage: 100 MG
     Route: 042
     Dates: start: 20220620, end: 20220620
  22. LEFLUNOMIDE [Concomitant]
     Active Substance: LEFLUNOMIDE
     Dosage: UNK
  23. PREDNISONE [Concomitant]
     Active Substance: PREDNISONE
     Indication: Premedication
     Dosage: UNK
     Dates: start: 20210422, end: 20210422
  24. TYLENOL [Concomitant]
     Active Substance: ACETAMINOPHEN
     Indication: Premedication
     Dosage: 1000 MG, TAKEN AT HOME
     Dates: start: 20220620, end: 20220620
  25. VAGIFEM [Concomitant]
     Active Substance: ESTRADIOL
     Dosage: 10 MG
     Route: 065
  26. XELJANZ [Concomitant]
     Active Substance: TOFACITINIB CITRATE
     Dosage: 1 DF
  27. XELJANZ [Concomitant]
     Active Substance: TOFACITINIB CITRATE
     Dosage: 1 DF , DOSAGE NOT AVAILABLE
     Route: 065

REACTIONS (14)
  - Myocarditis [Not Recovered/Not Resolved]
  - Blood pressure systolic increased [Recovered/Resolved]
  - Cough [Unknown]
  - Feeling cold [Unknown]
  - Heart rate increased [Unknown]
  - Pain [Recovered/Resolved]
  - Chest pain [Not Recovered/Not Resolved]
  - COVID-19 [Not Recovered/Not Resolved]
  - Fatigue [Not Recovered/Not Resolved]
  - Dyspnoea [Recovering/Resolving]
  - Condition aggravated [Not Recovered/Not Resolved]
  - Raynaud^s phenomenon [Recovering/Resolving]
  - Product use issue [Unknown]
  - Off label use [Unknown]

NARRATIVE: CASE EVENT DATE: 20210422
